FAERS Safety Report 14681065 (Version 1)
Quarter: 2018Q1

REPORT INFORMATION
  Report Type: Spontaneous
  Country: US (occurrence: US)
  Receive Date: 20180325
  Receipt Date: 20180325
  Transmission Date: 20180509
  Serious: No
  Sender: FDA-Public Use
  Company Number: None

PATIENT
  Age: 65 Year
  Sex: Female
  Weight: 58.97 kg

DRUGS (5)
  1. GABAPENTIN 100 MG [Suspect]
     Active Substance: GABAPENTIN
     Indication: NERVE INJURY
     Route: 048
     Dates: start: 20180213, end: 20180215
  2. DIAZEPAM. [Concomitant]
     Active Substance: DIAZEPAM
  3. CLONIDINE. [Concomitant]
     Active Substance: CLONIDINE
  4. ZOLPIDEM [Concomitant]
     Active Substance: ZOLPIDEM\ZOLPIDEM TARTRATE
  5. CITALOPRAN [Concomitant]

REACTIONS (3)
  - Cough [None]
  - Pneumonia [None]
  - Dyspnoea [None]
